FAERS Safety Report 6301723-X (Version None)
Quarter: 2009Q3

REPORT INFORMATION
  Report Type: 
  Country: None (occurrence: None)
  Receive Date: 20090805
  Receipt Date: 20090721
  Transmission Date: 20100115
  Serious: Yes (Other)
  Sender: FDA-Public Use
  Company Number: 8043868

PATIENT
  Sex: Male
  Weight: 3.2 kg

DRUGS (1)
  1. XOZAL [Suspect]
     Indication: RHINITIS ALLERGIC
     Dosage: 5 MG 1/D TRP
     Route: 064
     Dates: start: 20080710, end: 20080711

REACTIONS (3)
  - JAUNDICE NEONATAL [None]
  - MATERNAL DRUGS AFFECTING FOETUS [None]
  - PREMATURE BABY [None]
